FAERS Safety Report 8540965-X (Version None)
Quarter: 2012Q3

REPORT INFORMATION
  Report Type: 
  Country: None (occurrence: None)
  Receive Date: 20120726
  Receipt Date: 20110809
  Transmission Date: 20120928
  Serious: No
  Sender: FDA-Public Use
  Company Number: US-ASTRAZENECA-2011SE47519

PATIENT
  Age: 17 Year
  Sex: Female
  Weight: 49.9 kg

DRUGS (2)
  1. BIRTH CONTROL [Concomitant]
  2. SEROQUEL XR [Suspect]
     Indication: MAJOR DEPRESSION
     Route: 048
     Dates: start: 20110804

REACTIONS (3)
  - DIZZINESS [None]
  - SOMNOLENCE [None]
  - DRUG ADMINISTERED TO PATIENT OF INAPPROPRIATE AGE [None]
